FAERS Safety Report 4347808-9 (Version None)
Quarter: 2004Q2

REPORT INFORMATION
  Report Type: 
  Country: None (occurrence: None)
  Receive Date: 20040422
  Receipt Date: 20040331
  Transmission Date: 20050107
  Serious: Yes (Hospitalization, Other)
  Sender: FDA-Public Use
  Company Number: US_0402101094

PATIENT
  Age: 11 Year
  Sex: Female
  Weight: 57 kg

DRUGS (2)
  1. HUMATROPE [Suspect]
     Indication: TURNER'S SYNDROME
     Dosage: 3.2 MG
     Dates: start: 20011201
  2. SYNTHORID (LEVOTHYROXINE SODIUM) [Concomitant]

REACTIONS (1)
  - SLIPPED FEMORAL EPIPHYSIS [None]
